FAERS Safety Report 21359280 (Version 1)
Quarter: 2022Q3

REPORT INFORMATION
  Report Type: Other
  Country: JP (occurrence: JP)
  Receive Date: 20220921
  Receipt Date: 20220921
  Transmission Date: 20221027
  Serious: Yes (Hospitalization, Other)
  Sender: FDA-Public Use
  Company Number: JP-CHUGAI-2022013022

PATIENT
  Age: 69 Year
  Sex: Male
  Weight: 67.3 kg

DRUGS (4)
  1. ATEZOLIZUMAB [Suspect]
     Active Substance: ATEZOLIZUMAB
     Indication: Lung adenocarcinoma
     Dosage: MOST RECENT DOSE : 30/JUN/2022
     Route: 041
     Dates: start: 20220202
  2. BEVACIZUMAB [Suspect]
     Active Substance: BEVACIZUMAB
     Indication: Lung adenocarcinoma
     Route: 041
     Dates: start: 20220202, end: 20220609
  3. PACLITAXEL [Suspect]
     Active Substance: PACLITAXEL
     Indication: Lung adenocarcinoma
     Dosage: MOST RECENT DOSE : 05/APR/2022
     Route: 041
     Dates: start: 20220202
  4. CARBOPLATIN [Concomitant]
     Active Substance: CARBOPLATIN
     Indication: Lung adenocarcinoma
     Dosage: 440 MILLIGRAM
     Route: 041
     Dates: start: 20220202, end: 20220405

REACTIONS (4)
  - Hypothyroidism [Not Recovered/Not Resolved]
  - Neuropathy peripheral [Not Recovered/Not Resolved]
  - Proteinuria [Recovering/Resolving]
  - Hepatic function abnormal [Recovering/Resolving]

NARRATIVE: CASE EVENT DATE: 20220314
